FAERS Safety Report 10354224 (Version 5)
Quarter: 2014Q3

REPORT INFORMATION
  Report Type: Spontaneous
  Country: US (occurrence: US)
  Receive Date: 20140731
  Receipt Date: 20140814
  Transmission Date: 20150326
  Serious: Yes (Death, Hospitalization, Other)
  Sender: FDA-Public Use
  Company Number: US-JNJFOC-20140417321

PATIENT
  Age: 83 Year
  Sex: Female
  Weight: 58.3 kg

DRUGS (7)
  1. ALBUTEROL. [Concomitant]
     Active Substance: ALBUTEROL
     Route: 055
     Dates: start: 20140306, end: 20140311
  2. METOPROLOL [Concomitant]
     Active Substance: METOPROLOL
     Dosage: ONCE FOR EVERY 12 HOURS
     Route: 048
  3. XARELTO [Suspect]
     Active Substance: RIVAROXABAN
     Indication: CEREBROVASCULAR ACCIDENT PROPHYLAXIS
     Route: 048
     Dates: end: 20140311
  4. XARELTO [Suspect]
     Active Substance: RIVAROXABAN
     Indication: ATRIAL FIBRILLATION
     Route: 048
     Dates: end: 20140311
  5. ACETAMINOPHEN. [Concomitant]
     Active Substance: ACETAMINOPHEN
     Dosage: EVERY FOUR HOURS AS NEEDED
     Route: 065
  6. LEVOTHYROXINE [Concomitant]
     Active Substance: LEVOTHYROXINE
     Route: 048
     Dates: start: 20140306, end: 20140311
  7. PANTOPRAZOLE [Concomitant]
     Active Substance: PANTOPRAZOLE SODIUM
     Route: 065
     Dates: start: 20140305

REACTIONS (10)
  - Platelet count decreased [Not Recovered/Not Resolved]
  - Respiratory distress [Fatal]
  - Lactic acidosis [Fatal]
  - Coagulopathy [Fatal]
  - White blood cell count increased [Not Recovered/Not Resolved]
  - Hypotension [Fatal]
  - Blood creatinine increased [Not Recovered/Not Resolved]
  - Incorrect dose administered [Unknown]
  - Hepatic enzyme increased [Unknown]
  - Haemothorax [Fatal]

NARRATIVE: CASE EVENT DATE: 20140311
